FAERS Safety Report 7572510-X (Version None)
Quarter: 2011Q2

REPORT INFORMATION
  Report Type: 
  Country: None (occurrence: None)
  Receive Date: 20110627
  Receipt Date: 20110614
  Transmission Date: 20111010
  Serious: Yes (Hospitalization, Other)
  Sender: FDA-Public Use
  Company Number: CH-BIOGENIDEC-2011BI014486

PATIENT
  Age: 37 Year
  Sex: Female

DRUGS (2)
  1. STEROID [Concomitant]
  2. TYSABRI [Suspect]
     Indication: PRODUCT USED FOR UNKNOWN INDICATION
     Route: 042
     Dates: start: 20100716

REACTIONS (3)
  - HYPOMANIA [None]
  - AGITATION [None]
  - IRRITABILITY [None]
